FAERS Safety Report 6468150-6 (Version None)
Quarter: 2009Q4

REPORT INFORMATION
  Report Type: 
  Country: None (occurrence: None)
  Receive Date: 20091202
  Receipt Date: 20091120
  Transmission Date: 20100525
  Serious: Yes (Hospitalization)
  Sender: FDA-Public Use
  Company Number: GB-BAUSCH-2009BL006263

PATIENT
  Age: 16 Year
  Sex: Female
  Weight: 58 kg

DRUGS (4)
  1. PHENYLEPHRINE [Suspect]
     Indication: RETINOPATHY
     Route: 047
     Dates: start: 20090930, end: 20090930
  2. TROPICAMIDE [Suspect]
     Indication: RETINOPATHY
     Route: 047
     Dates: start: 20090930, end: 20090930
  3. INSULIN LISPRO [Concomitant]
     Indication: DRUG USE FOR UNKNOWN INDICATION
     Route: 058
  4. THYROXIN [Concomitant]
     Indication: DRUG USE FOR UNKNOWN INDICATION
     Route: 048

REACTIONS (1)
  - DIABETIC KETOACIDOSIS [None]
